FAERS Safety Report 10506601 (Version 1)
Quarter: 2014Q3

REPORT INFORMATION
  Report Type: Spontaneous
  Country: US (occurrence: None)
  Receive Date: 20140915
  Receipt Date: 20140915
  Transmission Date: 20150326
  Serious: Yes (Other)
  Sender: FDA-Public Use
  Company Number: 2014-US-000779

PATIENT
  Age: 63 Year
  Sex: Female
  Weight: 96.6 kg

DRUGS (10)
  1. MORPHINE (MORPHINE SULFATE) [Concomitant]
     Active Substance: MORPHINE SULFATE
  2. GENUVIA (DIAB CONTROL) [Concomitant]
  3. SPIRONOLACTONE. [Concomitant]
     Active Substance: SPIRONOLACTONE
  4. LEVOTHYROXINE (LEVOTHYROXINE) [Concomitant]
     Active Substance: LEVOTHYROXINE
  5. ATENOLOL. [Concomitant]
     Active Substance: ATENOLOL
  6. XYREM [Suspect]
     Active Substance: SODIUM OXYBATE
     Indication: CATAPLEXY
     Route: 048
     Dates: start: 201306, end: 2013
  7. NUVIGIL [Concomitant]
     Active Substance: ARMODAFINIL
  8. XYREM [Suspect]
     Active Substance: SODIUM OXYBATE
     Indication: NARCOLEPSY
     Route: 048
     Dates: start: 201306, end: 2013
  9. POTASSIUM CHLORIDE DAIHAN [Concomitant]
  10. ACETAZOLAMIDE. [Concomitant]
     Active Substance: ACETAZOLAMIDE

REACTIONS (3)
  - Continuous positive airway pressure [None]
  - Sleep-related eating disorder [None]
  - Unevaluable event [None]

NARRATIVE: CASE EVENT DATE: 2013
